FAERS Safety Report 6094934-2 (Version None)
Quarter: 2009Q1

REPORT INFORMATION
  Report Type: 
  Country: None (occurrence: None)
  Receive Date: 20090227
  Receipt Date: 20090223
  Transmission Date: 20090719
  Serious: Yes (Hospitalization)
  Sender: FDA-Public Use
  Company Number: US-BRISTOL-MYERS SQUIBB COMPANY-14519847

PATIENT
  Age: 58 Year
  Sex: Male
  Weight: 73 kg

DRUGS (2)
  1. AMPHOTERICIN B [Suspect]
     Indication: BLASTOMYCOSIS
     Dosage: 2,025, 50 MG TO 75 MG DAILY
     Route: 042
     Dates: start: 19690620
  2. HYDROCORTISONE [Suspect]
     Dosage: 1DF=25-40MG
     Route: 042

REACTIONS (5)
  - BLOOD UREA INCREASED [None]
  - CARDIAC FAILURE CONGESTIVE [None]
  - CARDIOMEGALY [None]
  - CREATININE RENAL CLEARANCE DECREASED [None]
  - WEIGHT INCREASED [None]
